FAERS Safety Report 6141760-1 (Version None)
Quarter: 2009Q2

REPORT INFORMATION
  Report Type: 
  Country: None (occurrence: None)
  Receive Date: 20090402
  Receipt Date: 20081030
  Transmission Date: 20091009
  Serious: No
  Sender: FDA-Public Use
  Company Number: US-ABBOTT-08P-163-0481021-00

PATIENT
  Sex: Female
  Weight: 72.64 kg

DRUGS (10)
  1. LUPRON DEPOT [Suspect]
     Indication: UTERINE LEIOMYOMA
     Route: 030
     Dates: start: 20080801
  2. LUPRON DEPOT [Suspect]
     Indication: PREMENSTRUAL SYNDROME
  3. HYDROCODONE BITARTRATE [Concomitant]
     Indication: PAIN
     Dosage: 5/500MG EVERY SIX HOURS AS NEEDED
     Route: 048
  4. METHOCARBAMOL [Concomitant]
     Indication: MUSCLE RELAXANT THERAPY
     Route: 048
  5. ZOLPIDEM TARTRATE [Concomitant]
     Indication: INSOMNIA
     Dosage: ONE DAILY AT NIGHT
     Route: 048
  6. METOPROLOL SUCCINATE [Concomitant]
     Indication: BLOOD PRESSURE
     Route: 048
  7. LISINOPRIL [Concomitant]
     Indication: BLOOD PRESSURE
     Route: 048
  8. CLONIDINE [Concomitant]
     Indication: DRUG USE FOR UNKNOWN INDICATION
     Route: 048
  9. ALPRAZOLAM [Concomitant]
     Indication: ANXIOLYTIC THERAPY
     Dosage: 3-4 PILLS DAILY AS NEEDED
     Route: 048
  10. PREGABALIN [Concomitant]
     Indication: NERVE INJURY
     Dosage: 50MG DAILY AT BEDTIME
     Route: 048

REACTIONS (2)
  - HEADACHE [None]
  - WEIGHT INCREASED [None]
